FAERS Safety Report 22292921 (Version 1)
Quarter: 2023Q2

REPORT INFORMATION
  Report Type: Spontaneous
  Country: US (occurrence: US)
  Receive Date: 20230508
  Receipt Date: 20230508
  Transmission Date: 20230721
  Serious: Yes (Other)
  Sender: FDA-Public Use
  Company Number: US-009507513-2305USA000917

PATIENT
  Sex: Male

DRUGS (4)
  1. KEYTRUDA [Suspect]
     Active Substance: PEMBROLIZUMAB
     Indication: Malignant melanoma stage II
     Dosage: UNK
     Route: 042
     Dates: start: 202209, end: 202303
  2. MEKTOVI [Concomitant]
     Active Substance: BINIMETINIB
     Dosage: UNK
     Dates: start: 202303
  3. BRAFTOVI [Concomitant]
     Active Substance: ENCORAFENIB
     Dosage: UNK
     Dates: start: 202303
  4. IMODIUM [Concomitant]
     Active Substance: LOPERAMIDE HYDROCHLORIDE

REACTIONS (8)
  - Malignant neoplasm progression [Not Recovered/Not Resolved]
  - Syncope [Not Recovered/Not Resolved]
  - Drug ineffective [Not Recovered/Not Resolved]
  - Malaise [Not Recovered/Not Resolved]
  - Weight decreased [Not Recovered/Not Resolved]
  - Vomiting [Not Recovered/Not Resolved]
  - Hypotension [Not Recovered/Not Resolved]
  - Pleural effusion [Not Recovered/Not Resolved]
